FAERS Safety Report 25125366 (Version 1)
Quarter: 2025Q1

REPORT INFORMATION
  Report Type: Spontaneous
  Country: ID (occurrence: ID)
  Receive Date: 20250326
  Receipt Date: 20250326
  Transmission Date: 20250409
  Serious: Yes (Hospitalization)
  Sender: EISAI
  Company Number: ID-Eisai-EC-2025-186130

PATIENT
  Age: 33 Year
  Sex: Female

DRUGS (1)
  1. DONEPEZIL [Suspect]
     Active Substance: DONEPEZIL
     Indication: Dementia

REACTIONS (2)
  - Bradycardia [Recovering/Resolving]
  - Atrial fibrillation [Recovering/Resolving]
